FAERS Safety Report 9176125 (Version 1)
Quarter: 2012Q4

REPORT INFORMATION
  Report Type: 
  Country: US (occurrence: US)
  Receive Date: 20120920
  Receipt Date: 20120920
  Transmission Date: 20130627
  Serious: Yes (Other)
  Sender: FDA-Public Use
  Company Number: US-RB-044592-12

PATIENT
  Sex: Male

DRUGS (1)
  1. SUBOXONE FILM [Suspect]
     Indication: PRODUCT USED FOR UNKNOWN INDICATION
     Dosage: Suboxone film
     Route: 065

REACTIONS (2)
  - Pancreatitis relapsing [Unknown]
  - Gallbladder disorder [Recovered/Resolved]
